FAERS Safety Report 8492656-1 (Version None)
Quarter: 2012Q3

REPORT INFORMATION
  Report Type: 
  Country: None (occurrence: None)
  Receive Date: 20120706
  Receipt Date: 20120608
  Transmission Date: 20120928
  Serious: Yes (Hospitalization)
  Sender: FDA-Public Use
  Company Number: FR-B.I. PHARMACEUTICALS,INC./RIDGEFIELD-2012-FF-00729FF

PATIENT
  Age: 89 Year
  Sex: Female

DRUGS (5)
  1. POTASSIUM CHLORIDE [Concomitant]
  2. PRADAXA [Suspect]
     Indication: ATRIAL FIBRILLATION
     Dosage: 220 MG
     Route: 048
     Dates: start: 20120401
  3. ACETAMINOPHEN [Concomitant]
  4. DIURETICS [Concomitant]
  5. BETABLOCKING AGENT [Concomitant]

REACTIONS (3)
  - NAUSEA [None]
  - VOMITING [None]
  - ABDOMINAL PAIN [None]
